FAERS Safety Report 13884290 (Version 1)
Quarter: 2017Q3

REPORT INFORMATION
  Report Type: Spontaneous
  Country: US (occurrence: US)
  Receive Date: 20170821
  Receipt Date: 20170821
  Transmission Date: 20171127
  Serious: No
  Sender: FDA-Public Use
  Company Number: US-CELGENEUS-USA-20170804786

PATIENT
  Sex: Male

DRUGS (1)
  1. OTEZLA [Suspect]
     Active Substance: APREMILAST
     Indication: PSORIASIS
     Dosage: ON EVEN DAYS: 60 MG?ON ODD DAYS: 30 MG?(2 ON EVEN DAYS  AND 1 ON ODD DAYS)
     Route: 048
     Dates: start: 201607

REACTIONS (3)
  - Psoriasis [Unknown]
  - Inappropriate schedule of drug administration [Unknown]
  - Nausea [Unknown]
